FAERS Safety Report 5311512-0 (Version None)
Quarter: 2007Q2

REPORT INFORMATION
  Report Type: 
  Country: None (occurrence: None)
  Receive Date: 20070430
  Receipt Date: 20070418
  Transmission Date: 20071010
  Serious: Yes (Other)
  Sender: FDA-Public Use
  Company Number: FR-GLAXOSMITHKLINE-B0451646A

PATIENT
  Age: 42 Year
  Sex: Female
  Weight: 120 kg

DRUGS (7)
  1. DEROXAT [Suspect]
     Dosage: 20MG PER DAY
     Route: 048
     Dates: start: 20061106
  2. ZYPREXA [Concomitant]
     Dosage: 20MG PER DAY
     Route: 048
     Dates: start: 20051101
  3. TERCIAN [Concomitant]
     Dosage: 100MG PER DAY
     Route: 048
  4. NORSET [Concomitant]
  5. DEPAMIDE [Concomitant]
     Dosage: 6TAB PER DAY
     Route: 048
  6. LYSANXIA [Concomitant]
  7. FORLAX [Concomitant]
     Indication: CONSTIPATION
     Dosage: 3SAC PER DAY
     Route: 048
     Dates: start: 20061025

REACTIONS (5)
  - DEPRESSED LEVEL OF CONSCIOUSNESS [None]
  - FALL [None]
  - LOSS OF CONSCIOUSNESS [None]
  - MALAISE [None]
  - TREMOR [None]
